FAERS Safety Report 12157236 (Version 1)
Quarter: 2016Q1

REPORT INFORMATION
  Report Type: Spontaneous
  Country: ES (occurrence: ES)
  Receive Date: 20160308
  Receipt Date: 20160308
  Transmission Date: 20160526
  Serious: Yes (Hospitalization)
  Sender: FDA-Public Use
  Company Number: ES-AMGEN-ESPSP2016025185

PATIENT
  Age: 91 Year
  Sex: Female

DRUGS (14)
  1. ARANESP [Suspect]
     Active Substance: DARBEPOETIN ALFA
     Dosage: UNK
     Route: 065
  2. ADIRO [Concomitant]
     Active Substance: ASPIRIN
     Dosage: 100 UNK, UNK
  3. PANTOPRAZOLE [Concomitant]
     Active Substance: PANTOPRAZOLE SODIUM
     Dosage: 40 MG, UNK
  4. ORFIDAL [Concomitant]
     Active Substance: LORAZEPAM
     Dosage: 1 MG, UNK
  5. ZYLORIC [Concomitant]
     Active Substance: ALLOPURINOL
     Dosage: 100 MG, UNK
  6. ARANESP [Suspect]
     Active Substance: DARBEPOETIN ALFA
     Indication: ANAEMIA
     Dosage: 20 MCG
     Route: 065
     Dates: start: 20150215
  7. PRITOR                             /01102601/ [Concomitant]
     Dosage: 40 MG, UNK
  8. SIMVASTATIN. [Concomitant]
     Active Substance: SIMVASTATIN
     Dosage: 20 MG, UNK
  9. SEGURIL [Concomitant]
     Active Substance: FUROSEMIDE
     Dosage: 40 MG, UNK
  10. FOSFOCINA                          /00552501/ [Concomitant]
     Dosage: 500 MG, UNK
  11. ACFOL [Concomitant]
     Active Substance: FOLIC ACID
  12. EUTIROX [Concomitant]
     Active Substance: LEVOTHYROXINE SODIUM
     Dosage: 100 MG, UNK
  13. HEMOVAS [Concomitant]
     Dosage: 600 MG, UNK
  14. ESCITALOPRAM [Concomitant]
     Active Substance: ESCITALOPRAM OXALATE
     Dosage: 10 MG, UNK

REACTIONS (2)
  - Transient ischaemic attack [Recovered/Resolved]
  - Seizure [Recovered/Resolved]

NARRATIVE: CASE EVENT DATE: 20160221
